FAERS Safety Report 5528835-2 (Version None)
Quarter: 2007Q4

REPORT INFORMATION
  Report Type: 
  Country: None (occurrence: None)
  Receive Date: 20071119
  Receipt Date: 20070727
  Transmission Date: 20080405
  Serious: No
  Sender: FDA-Public Use
  Company Number: TPA2007A01592

PATIENT
  Age: 66 Year
  Sex: Male
  Weight: 77.1115 kg

DRUGS (10)
  1. ROZEREM [Suspect]
     Indication: INSOMNIA
     Dosage: 8 MG, QHS, PER ORAL
     Route: 048
     Dates: start: 20070724
  2. LIPITOR [Concomitant]
  3. KLONOPIN [Concomitant]
  4. VALTREX [Concomitant]
  5. WELLBUTRIN [Concomitant]
  6. ZYRTEC [Concomitant]
  7. CELEBREX [Concomitant]
  8. IBUPROFEN (IBUPROFEN) [Concomitant]
  9. HYOSCYAMINE (HYOSCYAMINE) [Concomitant]
  10. ZANTAC 150 [Concomitant]

REACTIONS (4)
  - FATIGUE [None]
  - INSOMNIA [None]
  - MIDDLE INSOMNIA [None]
  - SOMNOLENCE [None]
